FAERS Safety Report 6270081-1 (Version None)
Quarter: 2009Q3

REPORT INFORMATION
  Report Type: 
  Country: None (occurrence: None)
  Receive Date: 20090716
  Receipt Date: 20090702
  Transmission Date: 20100115
  Serious: Yes (Other)
  Sender: FDA-Public Use
  Company Number: US-BAYER-200912016BCC

PATIENT
  Age: 80 Year
  Sex: Male
  Weight: 98 kg

DRUGS (2)
  1. ASPIRIN [Suspect]
     Indication: BLOOD CHOLESTEROL INCREASED
     Dosage: TOTAL DAILY DOSE: 1 DF
     Route: 048
     Dates: start: 20090101, end: 20090701
  2. CENTRUM SILVER [Concomitant]
     Route: 065

REACTIONS (1)
  - HAEMATOCHEZIA [None]
